FAERS Safety Report 21227420 (Version 1)
Quarter: 2022Q3

REPORT INFORMATION
  Report Type: Spontaneous
  Country: CA (occurrence: CA)
  Receive Date: 20220818
  Receipt Date: 20220818
  Transmission Date: 20221027
  Serious: Yes (Hospitalization)
  Sender: FDA-Public Use
  Company Number: None

PATIENT
  Age: 72 Year
  Sex: Female

DRUGS (2)
  1. QUETIAPINE FUMARATE [Suspect]
     Active Substance: QUETIAPINE FUMARATE
     Indication: Product used for unknown indication
     Route: 048
  2. QUETIAPINE FUMARATE [Concomitant]
     Active Substance: QUETIAPINE FUMARATE
     Dosage: 1 EVERY 1 DAYS
     Route: 065

REACTIONS (5)
  - Blood creatine phosphokinase increased [Recovered/Resolved]
  - Cataract [Recovered/Resolved]
  - Hyperhidrosis [Recovered/Resolved]
  - Rhabdomyolysis [Recovered/Resolved]
  - Tardive dyskinesia [Recovered/Resolved]
